FAERS Safety Report 16845217 (Version 2)
Quarter: 2020Q1

REPORT INFORMATION
  Report Type: Report from Study
  Country: None (occurrence: US)
  Receive Date: 20190924
  Receipt Date: 20200116
  Transmission Date: 20200409
  Serious: No
  Sender: FDA-Public Use
  Company Number: US-ABBVIE-19K-163-2933523-00

PATIENT
  Sex: Female

DRUGS (1)
  1. HUMIRA [Suspect]
     Active Substance: ADALIMUMAB
     Indication: COLITIS ULCERATIVE
     Dosage: CITRATE FREE
     Route: 058

REACTIONS (11)
  - Mucosal hypertrophy [Unknown]
  - Wound haemorrhage [Unknown]
  - Respiratory disorder [Unknown]
  - Nasal crusting [Unknown]
  - Rectal discharge [Unknown]
  - Rhinorrhoea [Unknown]
  - Secretion discharge [Unknown]
  - Rash [Unknown]
  - Erythema [Unknown]
  - Nasal obstruction [Unknown]
  - Pruritus [Unknown]
